FAERS Safety Report 8418776-5 (Version None)
Quarter: 2012Q2

REPORT INFORMATION
  Report Type: 
  Country: None (occurrence: None)
  Receive Date: 20120607
  Receipt Date: 20120529
  Transmission Date: 20120825
  Serious: Yes (Other)
  Sender: FDA-Public Use
  Company Number: US-ASTRAZENECA-2012SE34776

PATIENT
  Age: 73 Year
  Sex: Female

DRUGS (2)
  1. RHINOCORT [Suspect]
     Indication: HYPERSENSITIVITY
     Route: 045
  2. RHINOCORT [Suspect]
     Indication: UPPER-AIRWAY COUGH SYNDROME
     Route: 045

REACTIONS (4)
  - RETINAL TEAR [None]
  - OFF LABEL USE [None]
  - VISUAL IMPAIRMENT [None]
  - THERAPEUTIC RESPONSE UNEXPECTED [None]
